FAERS Safety Report 10345889 (Version 2)
Quarter: 2014Q4

REPORT INFORMATION
  Report Type: Spontaneous
  Country: IT (occurrence: IT)
  Receive Date: 20140728
  Receipt Date: 20141024
  Transmission Date: 20150528
  Serious: Yes (Hospitalization)
  Sender: FDA-Public Use
  Company Number: IT-TEVA-495394ISR

PATIENT
  Age: 72 Year
  Sex: Female

DRUGS (6)
  1. DEPAKIN CHRONO - 300 MG COMPRESSE A RILASCIO PROLUNGATO [Suspect]
     Active Substance: VALPROATE SODIUM
     Indication: DRUG ABUSE
     Dosage: 300 MILLIGRAM DAILY; 600 MG TOTAL
     Route: 048
     Dates: start: 20140522, end: 20140522
  2. CYMBALTA [Suspect]
     Active Substance: DULOXETINE HYDROCHLORIDE
     Indication: DRUG ABUSE
     Dosage: 30 MILLIGRAM DAILY; GASTRO-RESISTANT CAPSULE, HARD
     Route: 048
     Dates: start: 20140522, end: 20140522
  3. DEPAKIN CHRONO - 300 MG COMPRESSE A RILASCIO PROLUNGATO [Suspect]
     Active Substance: VALPROATE SODIUM
     Indication: HYPERTENSION
  4. TACHIPIRINA [Suspect]
     Active Substance: ACETAMINOPHEN
     Indication: DRUG ABUSE
     Dosage: EFFERVESCENT TABLET
     Route: 048
     Dates: start: 20140522, end: 20140522
  5. CONCOR - 10 MG COMPRESSE - BRACCO S.P.A. [Suspect]
     Active Substance: BISOPROLOL FUMARATE
     Indication: DRUG ABUSE
     Dosage: 10 MILLIGRAM DAILY;
     Route: 048
     Dates: start: 20140522, end: 20140522
  6. LORAZEPAM. [Suspect]
     Active Substance: LORAZEPAM
     Indication: DRUG ABUSE
     Dosage: 2 MILLIGRAM DAILY; 2-3 TABLET DAILY
     Route: 048
     Dates: start: 20140522, end: 20140522

REACTIONS (3)
  - Loss of consciousness [Recovered/Resolved]
  - Sopor [Recovered/Resolved]
  - Drug abuse [Recovered/Resolved]

NARRATIVE: CASE EVENT DATE: 20140522
